FAERS Safety Report 16233392 (Version 1)
Quarter: 2019Q2

REPORT INFORMATION
  Report Type: Spontaneous
  Country: US (occurrence: US)
  Receive Date: 20190424
  Receipt Date: 20190424
  Transmission Date: 20190711
  Serious: No
  Sender: FDA-Public Use
  Company Number: US-009507513-1904USA005736

PATIENT
  Age: 21 Year
  Sex: Female
  Weight: 137.87 kg

DRUGS (1)
  1. NEXPLANON [Suspect]
     Active Substance: ETONOGESTREL
     Dosage: 1 IMPLANT
     Route: 059
     Dates: start: 20150324

REACTIONS (7)
  - Vaginal haemorrhage [Unknown]
  - Adverse event [Unknown]
  - Device kink [Not Recovered/Not Resolved]
  - Incorrect product administration duration [Unknown]
  - Complication associated with device [Recovered/Resolved]
  - Complication of device removal [Not Recovered/Not Resolved]
  - Device breakage [Not Recovered/Not Resolved]

NARRATIVE: CASE EVENT DATE: 2016
